FAERS Safety Report 9995475 (Version 1)
Quarter: 2014Q1

REPORT INFORMATION
  Report Type: Spontaneous
  Country: US (occurrence: None)
  Receive Date: 20140225
  Receipt Date: 20140225
  Transmission Date: 20141002
  Serious: Yes (Other)
  Sender: FDA-Public Use
  Company Number: 2013-052

PATIENT
  Age: 65 Year
  Sex: Female

DRUGS (5)
  1. PRIALT [Suspect]
     Route: 037
  2. VICODIN (HYDROCODONE BITARTRATE PARACETAMOL) [Concomitant]
  3. FENTANYL (FENTANYL) [Concomitant]
  4. SOMA (CARISOPRODOL) [Concomitant]
  5. GABAPENTIN [Suspect]
     Route: 048

REACTIONS (5)
  - Hallucination [None]
  - Crying [None]
  - Pain [None]
  - Local swelling [None]
  - Mental status changes [None]
